FAERS Safety Report 9767938 (Version 3)
Quarter: 2013Q4

REPORT INFORMATION
  Report Type: Spontaneous
  Country: FR (occurrence: FR)
  Receive Date: 20131217
  Receipt Date: 20131227
  Transmission Date: 20140711
  Serious: Yes (Other)
  Sender: FDA-Public Use
  Company Number: FR-UCBSA-103032

PATIENT
  Age: 74 Year
  Sex: Male
  Weight: 79 kg

DRUGS (7)
  1. NEUPRO [Suspect]
     Indication: RESTLESS LEGS SYNDROME
     Dosage: 4 MG DAILY
     Route: 062
     Dates: start: 20121029, end: 201311
  2. CRESTOR [Concomitant]
     Dosage: UNKNOWN DOSE
  3. TRIATEC [Concomitant]
     Dosage: UNKNOWN DOSE
  4. KARDEGIC [Concomitant]
     Dosage: UNKNOWN DOSE
  5. PROCORALAN [Concomitant]
     Dosage: UNKNOWN DOSE
  6. ESOMEPRAZOLE [Concomitant]
     Dosage: UNKNOWN DOSE
  7. SIFROL [Concomitant]
     Dosage: UNKNOWN DOSE

REACTIONS (3)
  - Application site eczema [Not Recovered/Not Resolved]
  - Overdose [Recovered/Resolved]
  - Drug ineffective [Recovered/Resolved]
